FAERS Safety Report 8552448-1 (Version None)
Quarter: 2012Q3

REPORT INFORMATION
  Report Type: 
  Country: None (occurrence: None)
  Receive Date: 20120719
  Receipt Date: 20120713
  Transmission Date: 20120928
  Serious: Yes (Other)
  Sender: FDA-Public Use
  Company Number: 2012032863

PATIENT
  Sex: Male
  Weight: 83.2 kg

DRUGS (1)
  1. PRIVIGEN [Suspect]
     Dosage: INTRAVENOUS (NOT OTHERWISE SPECIFIED)
     Route: 042

REACTIONS (4)
  - ASTHENIA [None]
  - PNEUMONIA [None]
  - RASH [None]
  - WEIGHT DECREASED [None]
